FAERS Safety Report 9009848 (Version 1)
Quarter: 2013Q1

REPORT INFORMATION
  Report Type: Spontaneous
  Country: FR (occurrence: FR)
  Receive Date: 20130110
  Receipt Date: 20130110
  Transmission Date: 20140127
  Serious: Yes (Other)
  Sender: FDA-Public Use
  Company Number: FR-PFIZER INC-2013007240

PATIENT
  Age: 22 Year
  Sex: Male

DRUGS (10)
  1. EUPANTOL [Suspect]
     Dosage: 20 MG, 1X/DAY
     Route: 048
     Dates: end: 20121126
  2. CIPROFLOXACIN HCL [Suspect]
     Dosage: 900 MG (450 MG,STRENGTH-200 MG/100 ML)
     Route: 042
     Dates: start: 20121025, end: 20121130
  3. CEFTAZIDIME [Suspect]
     Dosage: 4 G, 1X/DAY
     Route: 042
     Dates: start: 20121025, end: 20121119
  4. FRAGMIN [Concomitant]
     Dosage: UNK
  5. TARDYFERON [Concomitant]
     Dosage: UNK
  6. DAFALGAN [Concomitant]
     Dosage: UNK
  7. FOLIC ACID [Concomitant]
     Dosage: UNK
  8. TOPALGIC [Concomitant]
     Dosage: UNK
  9. AVLOCARDYL [Concomitant]
     Dosage: UNK
  10. FORLAX [Concomitant]
     Dosage: UNK

REACTIONS (1)
  - Neutropenia [Recovered/Resolved]
